FAERS Safety Report 8874092 (Version 2)
Quarter: 2015Q1

REPORT INFORMATION
  Report Type: Report from Study
  Country: US (occurrence: US)
  Receive Date: 20121023
  Receipt Date: 20150204
  Transmission Date: 20150721
  Serious: Yes (Death)
  Sender: FDA-Public Use
  Company Number: US-ROCHE-1130654

PATIENT
  Age: 76 Year
  Sex: Male
  Weight: 76.27 kg

DRUGS (13)
  1. RITUXAN [Suspect]
     Active Substance: RITUXIMAB
     Indication: WALDENSTROM^S MACROGLOBULINAEMIA
     Dosage: MAINTENANCE DOSE 375MG/M2; 4 DOSES
     Route: 042
     Dates: start: 19990802, end: 19990825
  2. RITUXAN [Suspect]
     Active Substance: RITUXIMAB
     Dosage: MAINTENANCE DOSE 375MG/M2; 4 DOSES
     Route: 042
     Dates: start: 19990930, end: 19991021
  3. LOZOL [Concomitant]
     Active Substance: INDAPAMIDE
  4. TYLENOL [Concomitant]
     Active Substance: ACETAMINOPHEN
     Route: 048
  5. BENADRYL [Concomitant]
     Active Substance: DIPHENHYDRAMINE HYDROCHLORIDE
     Route: 042
  6. LEUKINE [Concomitant]
     Active Substance: SARGRAMOSTIM
     Route: 058
  7. ALLOPURINOL. [Concomitant]
     Active Substance: ALLOPURINOL
     Route: 065
  8. ATIVAN [Concomitant]
     Active Substance: LORAZEPAM
     Route: 042
  9. RITUXAN [Suspect]
     Active Substance: RITUXIMAB
     Route: 042
  10. CARDURA [Concomitant]
     Active Substance: DOXAZOSIN MESYLATE
  11. EPOGEN [Concomitant]
     Active Substance: ERYTHROPOIETIN
     Route: 058
  12. LOZOL [Concomitant]
     Active Substance: INDAPAMIDE
  13. RITUXAN [Suspect]
     Active Substance: RITUXIMAB
     Dosage: 2 DOSES
     Route: 042
     Dates: start: 20000420

REACTIONS (20)
  - Pneumonia [Unknown]
  - Supraventricular extrasystoles [Unknown]
  - Weight decreased [Unknown]
  - Hepatic mass [Unknown]
  - Sinus bradycardia [Unknown]
  - Pain in extremity [Unknown]
  - Nocturia [Unknown]
  - Hypersensitivity [Unknown]
  - Back pain [Unknown]
  - Pain [Unknown]
  - Paraesthesia [Unknown]
  - Somnolence [Unknown]
  - Headache [Recovered/Resolved]
  - Visual impairment [Unknown]
  - Upper respiratory tract infection [Recovered/Resolved]
  - Emotional distress [Unknown]
  - Death [Fatal]
  - Frustration [Unknown]
  - Electrocardiogram ST segment depression [Unknown]
  - Hypertension [Unknown]

NARRATIVE: CASE EVENT DATE: 19991102
